FAERS Safety Report 6464177-9 (Version None)
Quarter: 2009Q4

REPORT INFORMATION
  Report Type: 
  Country: None (occurrence: None)
  Receive Date: 20091201
  Receipt Date: 20091116
  Transmission Date: 20100525
  Serious: Yes (Other)
  Sender: FDA-Public Use
  Company Number: IT-ROCHE-669046

PATIENT
  Sex: Male

DRUGS (7)
  1. ENFUVIRTIDE [Suspect]
     Indication: HIV INFECTION
     Route: 058
  2. RIBAVIRIN [Suspect]
     Indication: HEPATITIS C
     Route: 065
  3. PEG-INTRON [Suspect]
     Indication: HEPATITIS C
     Route: 058
  4. CYCLOSPORINE [Suspect]
     Route: 065
  5. EMTRICITABINE [Suspect]
     Indication: HIV INFECTION
     Route: 065
  6. TENOFOVIR DISOPROXIL FUMARATE [Suspect]
     Indication: HIV INFECTION
     Dosage: PRE-OPERATIVE ADMINISTRATION
     Route: 065
  7. TENOFOVIR DISOPROXIL FUMARATE [Suspect]
     Route: 065

REACTIONS (5)
  - DRUG INEFFECTIVE [None]
  - FATIGUE [None]
  - HEPATIC CIRRHOSIS [None]
  - HEPATITIS C RNA INCREASED [None]
  - INJECTION SITE REACTION [None]
